FAERS Safety Report 15687671 (Version 1)
Quarter: 2018Q4

REPORT INFORMATION
  Report Type: Spontaneous
  Country: US (occurrence: US)
  Receive Date: 20181205
  Receipt Date: 20181205
  Transmission Date: 20190205
  Serious: No
  Sender: FDA-Public Use
  Company Number: US-ROCHE-2032881

PATIENT
  Age: 20 Year
  Sex: Male

DRUGS (1)
  1. ACTIVASE [Suspect]
     Active Substance: ALTEPLASE
     Indication: ARGINASE DEFICIENCY
     Route: 065

REACTIONS (1)
  - Asymmetric di-methylarginine increased [Recovered/Resolved]

NARRATIVE: CASE EVENT DATE: 20171124
